FAERS Safety Report 7150931-7 (Version None)
Quarter: 2010Q4

REPORT INFORMATION
  Report Type: 
  Country: None (occurrence: None)
  Receive Date: 20101210
  Receipt Date: 20101201
  Transmission Date: 20110411
  Serious: Yes (Other)
  Sender: FDA-Public Use
  Company Number: US-JNJFOC-20101109020

PATIENT
  Age: 80 Year
  Sex: Female
  Weight: 78.93 kg

DRUGS (12)
  1. TYLENOL (CAPLET) [Suspect]
     Indication: PAIN
     Dosage: REPORTED AS ^200 MG^
     Route: 048
  2. TYLENOL (CAPLET) [Suspect]
     Indication: STENT PLACEMENT
     Dosage: REPORTED AS ^200 MG^
     Route: 048
  3. TYLENOL (CAPLET) [Suspect]
     Indication: ARTERIAL GRAFT
     Dosage: REPORTED AS ^200 MG^
     Route: 048
  4. TYLENOL (CAPLET) [Suspect]
  5. TYLENOL (CAPLET) [Suspect]
     Indication: PRODUCT USED FOR UNKNOWN INDICATION
  6. AVAPRO [Concomitant]
  7. TENORMIN [Concomitant]
  8. RYTHMOL [Concomitant]
  9. PRAVACHOL [Concomitant]
  10. CLONIDINE [Concomitant]
  11. CENTRUM SILVER MULTIVITAMINS [Concomitant]
     Indication: VITAMIN SUPPLEMENTATION
  12. HYDROCHLOROTHIAZIDE [Concomitant]

REACTIONS (1)
  - BLOOD PRESSURE INCREASED [None]
